FAERS Safety Report 9396786 (Version 1)
Quarter: 2013Q3

REPORT INFORMATION
  Report Type: Report from Study
  Country: US (occurrence: US)
  Receive Date: 20130712
  Receipt Date: 20130712
  Transmission Date: 20140515
  Serious: Yes (Other)
  Sender: FDA-Public Use
  Company Number: US-ROCHE-1246994

PATIENT
  Sex: Female
  Weight: 126.21 kg

DRUGS (10)
  1. XOLAIR [Suspect]
     Indication: ASTHMA
     Route: 058
     Dates: start: 20081120
  2. SINGULAIR [Concomitant]
     Indication: HYPERSENSITIVITY
     Route: 048
  3. SINGULAIR [Concomitant]
     Indication: ASTHMA
  4. VENTOLIN [Concomitant]
     Indication: ASTHMA
     Dosage: DOSE: 2 PUFF
     Route: 050
  5. ADVAIR [Concomitant]
     Indication: ASTHMA
     Dosage: DOSE: 1 PUFFS, DRUG REPORTED AS ADAVIR DISCUS 500
     Route: 050
  6. PROTONIX (UNITED STATES) [Concomitant]
     Indication: GASTROOESOPHAGEAL REFLUX DISEASE
     Route: 048
  7. EPIPEN [Concomitant]
  8. ALLEGRA [Concomitant]
     Indication: HYPERSENSITIVITY
     Route: 048
  9. VERAMYST [Concomitant]
     Indication: HYPERSENSITIVITY
     Dosage: DOSE: 25
     Route: 045
  10. SUDAFED [Concomitant]
     Dosage: 1 TABLET TWICE DAILY AS REQUIRED
     Route: 048

REACTIONS (1)
  - Asthma [Recovered/Resolved]
